FAERS Safety Report 6142985-1 (Version None)
Quarter: 2009Q2

REPORT INFORMATION
  Report Type: 
  Country: None (occurrence: None)
  Receive Date: 20090403
  Receipt Date: 20090326
  Transmission Date: 20091009
  Serious: Yes (Other)
  Sender: FDA-Public Use
  Company Number: RU-ROCHE-594609

PATIENT
  Age: 44 Year
  Sex: Female

DRUGS (4)
  1. XELODA [Suspect]
     Route: 048
     Dates: start: 20071201
  2. AVASTIN [Suspect]
     Route: 042
     Dates: start: 20081010
  3. MITOMYCIN [Concomitant]
     Dates: start: 20071201, end: 20080101
  4. OXALIPLATIN [Concomitant]
     Dosage: FREQUENCY REPORTED:  PER WEEK
     Dates: start: 20080101

REACTIONS (11)
  - ASTHENIA [None]
  - COAGULATION TIME PROLONGED [None]
  - DIARRHOEA [None]
  - DISEASE PROGRESSION [None]
  - LEUKOPENIA [None]
  - NEOPLASM RECURRENCE [None]
  - NEUROPATHY PERIPHERAL [None]
  - PALMAR-PLANTAR ERYTHRODYSAESTHESIA SYNDROME [None]
  - PLATELET DISORDER [None]
  - POLYNEUROPATHY [None]
  - RECTAL HAEMORRHAGE [None]
